FAERS Safety Report 8059339-3 (Version None)
Quarter: 2012Q1

REPORT INFORMATION
  Report Type: 
  Country: None (occurrence: None)
  Receive Date: 20120119
  Receipt Date: 20120119
  Transmission Date: 20120608
  Serious: Yes (Other)
  Sender: FDA-Public Use
  Company Number: None

PATIENT
  Sex: Female

DRUGS (4)
  1. KEPPRA [Concomitant]
  2. CEENU [Suspect]
     Indication: BRAIN NEOPLASM MALIGNANT
     Dosage: 100MG EVERY 4 WEEKS ORAL
     Route: 048
     Dates: start: 20110121, end: 20120120
  3. LAMICTAL [Concomitant]
  4. VIMPAT [Concomitant]

REACTIONS (2)
  - PLATELET COUNT DECREASED [None]
  - RETINAL EXUDATES [None]
